FAERS Safety Report 9009877 (Version 1)
Quarter: 2013Q1

REPORT INFORMATION
  Report Type: Spontaneous
  Country: GB (occurrence: GB)
  Receive Date: 20130110
  Receipt Date: 20130110
  Transmission Date: 20140127
  Serious: Yes (Other)
  Sender: FDA-Public Use
  Company Number: GB-BANPHARM-20120510

PATIENT
  Age: 3 Decade
  Sex: Female

DRUGS (2)
  1. IBUPROFEN UNKNOWN PRODUCT [Suspect]
     Dosage: 200 MG, TID,
     Route: 048
  2. EPILIM [Suspect]
     Dosage: 400 MG, BID,
     Route: 048
     Dates: start: 200203

REACTIONS (2)
  - Drug interaction [Unknown]
  - Haematemesis [Unknown]
